FAERS Safety Report 13207946 (Version 1)
Quarter: 2017Q1

REPORT INFORMATION
  Report Type: Report from Study
  Country: US (occurrence: US)
  Receive Date: 20170209
  Receipt Date: 20170209
  Transmission Date: 20170428
  Serious: Yes (Other)
  Sender: FDA-Public Use
  Company Number: US-MYLANLABS-2017M1007205

PATIENT

DRUGS (7)
  1. TEMOZOLOMIDE. [Suspect]
     Active Substance: TEMOZOLOMIDE
     Indication: HEPATIC CANCER METASTATIC
     Dosage: 100 MG/M2 AT BEDTIME ON DAYS 1-5 (DOSE LEVEL 1)
     Route: 048
  2. TEMOZOLOMIDE. [Suspect]
     Active Substance: TEMOZOLOMIDE
     Dosage: 200 MG/M2 AT BEDTIME ON DAYS 1-5 (DOSE LEVEL 3,4,5)
     Route: 048
  3. ONDANSETRON [Concomitant]
     Active Substance: ONDANSETRON
     Indication: PROPHYLAXIS OF NAUSEA AND VOMITING
     Dosage: 8MG
     Route: 048
  4. BORTEZOMIB [Suspect]
     Active Substance: BORTEZOMIB
     Indication: HEPATIC CANCER METASTATIC
     Dosage: 1 MG/M2 ON DAYS 2, 5, 9 AND 12 (DOSE LEVEL 1, 2 AND 3)
     Route: 042
  5. BORTEZOMIB [Suspect]
     Active Substance: BORTEZOMIB
     Dosage: 1.5 MG/M2 ON DAYS 2, 5, 9 AND 12 (DOSE LEVEL 5)
     Route: 042
  6. TEMOZOLOMIDE. [Suspect]
     Active Substance: TEMOZOLOMIDE
     Dosage: 150 MG/M2 AT BEDTIME ON DAYS 1-5 (DOSE LEVEL 2)
     Route: 048
  7. BORTEZOMIB [Suspect]
     Active Substance: BORTEZOMIB
     Dosage: 1.3 MG/M2 ON DAYS 2, 5, 9 AND 12 (DOSE LEVEL 4)
     Route: 042

REACTIONS (3)
  - Blood alkaline phosphatase increased [Unknown]
  - Blood bilirubin increased [Unknown]
  - Aspartate aminotransferase increased [Unknown]
